FAERS Safety Report 9168223 (Version 1)
Quarter: 2013Q1

REPORT INFORMATION
  Report Type: Spontaneous
  Country: US (occurrence: None)
  Receive Date: 20130313
  Receipt Date: 20130313
  Transmission Date: 20140127
  Serious: Yes (Hospitalization)
  Sender: FDA-Public Use
  Company Number: None

PATIENT
  Sex: Female
  Weight: 57.7 kg

DRUGS (13)
  1. REVLIMID [Suspect]
     Dosage: DAYS 1-28
     Route: 048
     Dates: start: 20120807, end: 20130304
  2. ACYCLOVIR [Concomitant]
  3. ANUSOL-HC CREAM [Concomitant]
  4. ACENOLOL [Concomitant]
  5. BACTRIM [Concomitant]
  6. COLACE [Concomitant]
  7. ERGOCALCIFEROL [Concomitant]
  8. FOLATE [Concomitant]
  9. LEVOTHYROXINE SODIUM [Concomitant]
  10. MORPHINE [Concomitant]
  11. NYSTATIN POWDER [Concomitant]
  12. OMPERAZOLE [Concomitant]
  13. VITAMIN D3 [Concomitant]

REACTIONS (5)
  - Pyrexia [None]
  - Vomiting [None]
  - Back pain [None]
  - Headache [None]
  - Bacterial sepsis [None]
